FAERS Safety Report 4619697-6 (Version None)
Quarter: 2005Q1

REPORT INFORMATION
  Report Type: 
  Country: None (occurrence: None)
  Receive Date: 20050317
  Receipt Date: 20050317
  Transmission Date: 20050727
  Serious: Yes (Hospitalization)
  Sender: FDA-Public Use
  Company Number: None

PATIENT
  Sex: Female

DRUGS (1)
  1. STRATTERA [Suspect]
     Indication: ABNORMAL BEHAVIOUR
     Dosage: 18 MG QDAY ORAL
     Route: 048
     Dates: start: 20041102, end: 20041110

REACTIONS (7)
  - CSF PRESSURE DECREASED [None]
  - HEADACHE [None]
  - NAUSEA [None]
  - PAPILLOEDEMA [None]
  - PARALYSIS [None]
  - PHYSICAL EXAMINATION ABNORMAL [None]
  - VOMITING [None]
